FAERS Safety Report 16136600 (Version 1)
Quarter: 2019Q2

REPORT INFORMATION
  Report Type: Other
  Country: ES (occurrence: ES)
  Receive Date: 20190401
  Receipt Date: 20190401
  Transmission Date: 20190711
  Serious: Yes (Life-Threatening)
  Sender: FDA-Public Use
  Company Number: ES-MACLEODS PHARMACEUTICALS US LTD-MAC2019020630

PATIENT

DRUGS (4)
  1. NEOSIDANTOIN [Interacting]
     Active Substance: PHENYTOIN
     Indication: GENERALISED TONIC-CLONIC SEIZURE
     Dosage: 100 MILLIGRAM, 5 PER DAY
     Route: 048
     Dates: start: 20061222, end: 20061230
  2. PANTOPRAZOLE 40MG INTRAVENOUS [Suspect]
     Active Substance: PANTOPRAZOLE SODIUM
     Indication: PEPTIC ULCER
     Dosage: 40 MILLIGRAM, QD
     Route: 042
     Dates: start: 20061120, end: 20061230
  3. VALPROIC ACID. [Interacting]
     Active Substance: VALPROIC ACID
     Indication: GENERALISED TONIC-CLONIC SEIZURE
     Dosage: UNK
     Route: 065
     Dates: start: 20061120
  4. FENITOINA RUBIO [Concomitant]
     Indication: GENERALISED TONIC-CLONIC SEIZURE
     Dosage: 450 MILLIGRAM, QD
     Route: 042
     Dates: start: 20061215, end: 20061221

REACTIONS (2)
  - Anaemia [Recovered/Resolved]
  - Drug interaction [Unknown]

NARRATIVE: CASE EVENT DATE: 20061222
